FAERS Safety Report 21408214 (Version 1)
Quarter: 2022Q4

REPORT INFORMATION
  Report Type: Spontaneous
  Country: US (occurrence: US)
  Receive Date: 20221004
  Receipt Date: 20221004
  Transmission Date: 20230113
  Serious: No
  Sender: FDA-Public Use
  Company Number: US-ALLERGAN-2218775US

PATIENT
  Sex: Female

DRUGS (1)
  1. FLUOROMETHOLONE [Suspect]
     Active Substance: FLUOROMETHOLONE
     Indication: Product used for unknown indication
     Dosage: UNK
     Route: 047
     Dates: start: 20220330

REACTIONS (3)
  - Product dose omission issue [Unknown]
  - Product use complaint [Unknown]
  - Product complaint [Unknown]
